FAERS Safety Report 9085049 (Version 1)
Quarter: 2013Q1

REPORT INFORMATION
  Report Type: Report from Study
  Country: US (occurrence: US)
  Receive Date: 20130131
  Receipt Date: 20130131
  Transmission Date: 20140127
  Serious: No
  Sender: FDA-Public Use
  Company Number: US-ABBOTT-12P-163-0986216-00

PATIENT
  Age: 56 Year
  Sex: Female

DRUGS (12)
  1. HUMIRA [Suspect]
     Indication: PSORIASIS
     Dosage: LOADING DOSE
     Dates: start: 20120920, end: 20120920
  2. HUMIRA [Suspect]
  3. METFORMIN [Concomitant]
     Indication: GLYCOSYLATED HAEMOGLOBIN INCREASED
  4. NEXIUM [Concomitant]
     Indication: PRODUCT USED FOR UNKNOWN INDICATION
  5. PAXIL [Concomitant]
     Indication: DEPRESSION
  6. WELLBUTRIN XL [Concomitant]
     Indication: DEPRESSION
  7. ARMOUR THYROID [Concomitant]
     Indication: HYPOTHYROIDISM
  8. PRAVASTATIN [Concomitant]
     Indication: BLOOD CHOLESTEROL INCREASED
  9. ESTRADIOL [Concomitant]
     Indication: HORMONE REPLACEMENT THERAPY
  10. PREMARIN [Concomitant]
     Indication: HORMONE REPLACEMENT THERAPY
     Dosage: AT BEDTIME
  11. CALCIUM D3 VIT [Concomitant]
     Indication: PRODUCT USED FOR UNKNOWN INDICATION
  12. KLONOPIN [Concomitant]
     Indication: PRODUCT USED FOR UNKNOWN INDICATION

REACTIONS (5)
  - Drug ineffective [Not Recovered/Not Resolved]
  - Headache [Not Recovered/Not Resolved]
  - Scratch [Recovering/Resolving]
  - Nausea [Recovered/Resolved]
  - Hypophagia [Unknown]
